FAERS Safety Report 9644060 (Version 1)
Quarter: 2013Q4

REPORT INFORMATION
  Report Type: Spontaneous
  Country: GB (occurrence: GB)
  Receive Date: 20131024
  Receipt Date: 20131024
  Transmission Date: 20140711
  Serious: Yes (Disabling)
  Sender: FDA-Public Use
  Company Number: GB-ASTRAZENECA-2013SE76403

PATIENT
  Age: 62 Year
  Sex: Female
  Weight: 57.6 kg

DRUGS (7)
  1. CRESTOR [Suspect]
     Indication: HYPERCHOLESTEROLAEMIA
     Route: 048
     Dates: start: 20080922, end: 20130806
  2. CRESTOR [Suspect]
     Indication: HYPERTRIGLYCERIDAEMIA
     Route: 048
     Dates: start: 20080922, end: 20130806
  3. CALCIUM [Concomitant]
  4. OMACOR [Concomitant]
  5. TRAMADOL [Concomitant]
     Indication: NEURALGIA
  6. VAGIFEM [Concomitant]
  7. VITAMIN D [Concomitant]

REACTIONS (6)
  - Anxiety [Recovered/Resolved]
  - Tension [Recovered/Resolved]
  - Depression [Recovered/Resolved]
  - Pain in extremity [Recovering/Resolving]
  - Amnesia [Not Recovered/Not Resolved]
  - Blood glucose increased [Unknown]
